FAERS Safety Report 9344517 (Version 2)
Quarter: 2013Q3

REPORT INFORMATION
  Report Type: Report from Study
  Country: US (occurrence: US)
  Receive Date: 20130612
  Receipt Date: 20130710
  Transmission Date: 20140515
  Serious: No
  Sender: FDA-Public Use
  Company Number: US-ELI_LILLY_AND_COMPANY-US201305002535

PATIENT
  Sex: Female
  Weight: 81.63 kg

DRUGS (1)
  1. TERIPARATIDE [Suspect]
     Indication: SENILE OSTEOPOROSIS
     Dosage: UNK, QD
     Dates: start: 20120501

REACTIONS (1)
  - No adverse event [Unknown]
